FAERS Safety Report 5576523-9 (Version None)
Quarter: 2007Q4

REPORT INFORMATION
  Report Type: 
  Country: None (occurrence: None)
  Receive Date: 20071228
  Receipt Date: 20071220
  Transmission Date: 20080405
  Serious: Yes (Other)
  Sender: FDA-Public Use
  Company Number: B0492603A

PATIENT
  Age: 50 Year
  Sex: Female
  Weight: 36 kg

DRUGS (26)
  1. ZIAGEN [Suspect]
     Indication: HIV INFECTION
     Dosage: 600MG PER DAY
     Route: 048
     Dates: start: 20070919
  2. EPIVIR [Suspect]
     Indication: ACQUIRED IMMUNODEFICIENCY SYNDROME
     Dosage: 150MG TWICE PER DAY
     Route: 048
     Dates: start: 20070919
  3. KALETRA [Suspect]
     Indication: ACQUIRED IMMUNODEFICIENCY SYNDROME
     Route: 048
     Dates: start: 20070912, end: 20071119
  4. VALGANCICLOVIR HCL [Concomitant]
     Indication: ANTIVIRAL PROPHYLAXIS
     Dosage: 900MG PER DAY
     Route: 048
     Dates: start: 20070912
  5. ULCERLMIN [Concomitant]
     Indication: GASTRITIS
     Dosage: 3G PER DAY
     Route: 048
     Dates: start: 20070904
  6. NITRAZEPAM [Concomitant]
     Indication: INSOMNIA
     Dosage: 5MG PER DAY
     Route: 048
     Dates: start: 20070905
  7. AMOBAN [Concomitant]
     Indication: INSOMNIA
     Dosage: 10MG PER DAY
     Route: 048
     Dates: start: 20070907
  8. TRUVADA [Concomitant]
     Indication: ACQUIRED IMMUNODEFICIENCY SYNDROME
     Route: 048
     Dates: start: 20070912, end: 20070918
  9. TRUVADA [Concomitant]
     Route: 048
     Dates: start: 20071106, end: 20071113
  10. REYATAZ [Concomitant]
     Indication: ACQUIRED IMMUNODEFICIENCY SYNDROME
     Dosage: 300MG PER DAY
     Route: 048
     Dates: start: 20071106, end: 20071113
  11. REYATAZ [Concomitant]
     Dosage: 300MG PER DAY
     Route: 048
     Dates: start: 20071120
  12. NORVIR [Concomitant]
     Indication: ACQUIRED IMMUNODEFICIENCY SYNDROME
     Dosage: 100MG PER DAY
     Route: 048
     Dates: start: 20071107, end: 20071113
  13. NORVIR [Concomitant]
     Dosage: 100MG PER DAY
     Route: 048
     Dates: start: 20071120
  14. VALGANCICLOVIR HCL [Concomitant]
     Dosage: 450MG PER DAY
     Route: 048
     Dates: start: 20070919
  15. VALGANCICLOVIR HCL [Concomitant]
     Dosage: 450MG PER DAY
     Route: 048
     Dates: start: 20071017
  16. MAGNESIUM OXIDE [Concomitant]
     Indication: CONSTIPATION
     Dosage: 1.2G PER DAY
     Route: 048
     Dates: start: 20070907
  17. GASTER D [Concomitant]
     Dosage: 40MG PER DAY
     Route: 048
     Dates: start: 20070907, end: 20071105
  18. CALONAL [Concomitant]
     Indication: HEADACHE
     Route: 048
     Dates: start: 20070916
  19. LOXONIN [Concomitant]
     Indication: ARTHRALGIA
     Route: 048
     Dates: start: 20070905, end: 20071115
  20. LOXONIN [Concomitant]
     Dosage: 120MG PER DAY
     Route: 048
     Dates: start: 20071116
  21. DEPAS [Concomitant]
     Indication: ANXIETY
     Dosage: 1MG PER DAY
     Route: 048
     Dates: start: 20070921
  22. LUVOX [Concomitant]
     Indication: ANXIETY
     Dosage: 50MG PER DAY
     Route: 048
     Dates: start: 20070928
  23. MUCOSTA [Concomitant]
     Dosage: 300MG PER DAY
     Route: 048
     Dates: start: 20071107
  24. TAKEPRON [Concomitant]
     Dosage: 30MG PER DAY
     Route: 048
     Dates: start: 20071114, end: 20071119
  25. CYTOTEC [Concomitant]
     Dosage: 800MCG PER DAY
     Route: 048
     Dates: start: 20071122
  26. NSAIDS [Concomitant]

REACTIONS (14)
  - ALANINE AMINOTRANSFERASE INCREASED [None]
  - ALOPECIA [None]
  - ARTHRALGIA [None]
  - ASPARTATE AMINOTRANSFERASE INCREASED [None]
  - BLOOD ALKALINE PHOSPHATASE INCREASED [None]
  - BLOOD LACTATE DEHYDROGENASE DECREASED [None]
  - GAMMA-GLUTAMYLTRANSFERASE INCREASED [None]
  - HEADACHE [None]
  - MALAISE [None]
  - MUSCULOSKELETAL STIFFNESS [None]
  - MYALGIA [None]
  - RED BLOOD CELL COUNT DECREASED [None]
  - RED BLOOD CELL SEDIMENTATION RATE INCREASED [None]
  - WHITE BLOOD CELL COUNT DECREASED [None]
